FAERS Safety Report 4824708-9 (Version None)
Quarter: 2005Q4

REPORT INFORMATION
  Report Type: 
  Country: None (occurrence: None)
  Receive Date: 20051108
  Receipt Date: 20051022
  Transmission Date: 20060501
  Serious: Yes (Other)
  Sender: FDA-Public Use
  Company Number: FR_051007394

PATIENT
  Age: 87 Year
  Sex: Female

DRUGS (16)
  1. FORTEO [Suspect]
     Indication: OSTEOPOROSIS
     Dosage: 20 UG DAY
     Dates: start: 20051010, end: 20051023
  2. HYPERIUM (RILMENIDINE) [Concomitant]
  3. PREDNISONE [Concomitant]
  4. OROCAL D [Concomitant]
  5. SODIUM [Concomitant]
  6. LAMALINE [Concomitant]
  7. AERIUS (DESLORATADINE) [Concomitant]
  8. CYCLOPHOSPHAMIDE [Concomitant]
  9. STABLON (TIANEPTINE) [Concomitant]
  10. POTASSIUM CHLORIDE [Concomitant]
  11. OMEPRAZOLE [Concomitant]
  12. LENDERFOLINE (CALCIUM FOLINATE) [Concomitant]
  13. NIDREL (NITRENDIPINE) [Concomitant]
  14. XZYALL (LEVOCETIRIZINE) [Concomitant]
  15. FER ^UCB^ (FERROUS CHLORIDE) [Concomitant]
  16. DEDROGYL (CALCIFEDIOL) [Concomitant]

REACTIONS (4)
  - BEDRIDDEN [None]
  - CONDITION AGGRAVATED [None]
  - FATIGUE [None]
  - HYPERTENSION [None]
